FAERS Safety Report 25041807 (Version 3)
Quarter: 2025Q2

REPORT INFORMATION
  Report Type: Spontaneous
  Country: NL (occurrence: NL)
  Receive Date: 20250305
  Receipt Date: 20250501
  Transmission Date: 20250717
  Serious: No
  Sender: PFIZER
  Company Number: NL-PFIZER INC-202500045455

PATIENT

DRUGS (1)
  1. DEPO-PROVERA [Suspect]
     Active Substance: MEDROXYPROGESTERONE ACETATE
     Indication: Contraception

REACTIONS (1)
  - Device breakage [Unknown]
